FAERS Safety Report 8369802-3 (Version None)
Quarter: 2012Q2

REPORT INFORMATION
  Report Type: 
  Country: None (occurrence: None)
  Receive Date: 20120518
  Receipt Date: 20120507
  Transmission Date: 20120825
  Serious: Yes (Congenital Anomaly)
  Sender: FDA-Public Use
  Company Number: DE-TEVA-336839GER

PATIENT
  Age: 0 Year
  Sex: Female

DRUGS (4)
  1. ASTONIN-H [Concomitant]
     Route: 064
  2. LAMOTRIGINE [Suspect]
     Route: 064
  3. DEXAMETHASONE SODIUM PHOSPHATE [Concomitant]
     Route: 064
  4. HYDROCORTISONE [Concomitant]
     Route: 064

REACTIONS (6)
  - CEREBRAL VENTRICLE DILATATION [None]
  - TALIPES [None]
  - CEREBELLAR HYPOPLASIA [None]
  - OESOPHAGEAL ATRESIA [None]
  - BRACHYCEPHALY [None]
  - RETROGNATHIA [None]
